FAERS Safety Report 8168325 (Version 2)
Quarter: 2013Q1

REPORT INFORMATION
  Report Type: Spontaneous
  Country: US (occurrence: None)
  Receive Date: 20110926
  Receipt Date: 20121114
  Transmission Date: 20140127
  Serious: Yes (Death, Hospitalization, Other)
  Sender: FDA-Public Use
  Company Number: TPA2011A05707

PATIENT
  Sex: Female

DRUGS (4)
  1. ACTOS [Suspect]
     Indication: BLOOD GLUCOSE FLUCTUATION
     Dates: start: 2002, end: 2003
  2. METFORMIN (METFORMIN) [Concomitant]
  3. GLUCOPHAGE (METFORMIN HYDROCHLORIDE) [Concomitant]
  4. MICRONASE (GLIBENCLAMIDE) [Concomitant]

REACTIONS (1)
  - Bladder cancer [None]
